FAERS Safety Report 9145439 (Version 1)
Quarter: 2013Q1

REPORT INFORMATION
  Report Type: Spontaneous
  Country: US (occurrence: None)
  Receive Date: 20130226
  Receipt Date: 20130226
  Transmission Date: 20140127
  Serious: No
  Sender: FDA-Public Use
  Company Number: None

PATIENT
  Age: 59 Year
  Sex: Female
  Weight: 64.86 kg

DRUGS (1)
  1. FOSAMAX [Suspect]
     Indication: OSTEOPENIA
     Dosage: 40 MILIGRAMS WEEKLY
     Dates: start: 20020301, end: 20100723

REACTIONS (4)
  - Stress fracture [None]
  - Femur fracture [None]
  - Foot fracture [None]
  - Pathological fracture [None]
